FAERS Safety Report 9135246 (Version 4)
Quarter: 2013Q3

REPORT INFORMATION
  Report Type: Report from Study
  Country: US (occurrence: US)
  Receive Date: 20130304
  Receipt Date: 20130813
  Transmission Date: 20140515
  Serious: Yes (Hospitalization)
  Sender: FDA-Public Use
  Company Number: US-BAYER-2013-022347

PATIENT
  Age: 52 Year
  Sex: Male
  Weight: 109 kg

DRUGS (7)
  1. REGORAFENIB [Suspect]
     Indication: COLORECTAL CANCER METASTATIC
     Dosage: 160 MG, QD (DAYS 1-14
     Route: 048
     Dates: start: 20120824, end: 20120906
  2. REGORAFENIB [Suspect]
     Indication: COLORECTAL CANCER METASTATIC
     Dosage: 120 MG, QD (DAYS 1-14
     Route: 048
     Dates: start: 20120921, end: 20121008
  3. PERCOCET [Concomitant]
     Indication: PAIN
     Dosage: 10 / 650, PRN
     Route: 048
     Dates: start: 20111125
  4. LASIX [Concomitant]
     Indication: OEDEMA
     Dosage: DAILY DOSE 40 MG
     Route: 048
     Dates: start: 20120123
  5. ATIVAN [Concomitant]
     Indication: NAUSEA
     Dosage: 1 MG, PRN
     Route: 048
     Dates: start: 20101215
  6. MORPHINI SULFAS [Concomitant]
     Indication: BACK PAIN
     Dosage: DAILY DOSE 45 MG
     Route: 048
     Dates: start: 20120914
  7. MORPHINE [Concomitant]
     Indication: BACK PAIN
     Dosage: DAILY DOSE 120 MG
     Route: 048
     Dates: start: 20120914

REACTIONS (1)
  - Mental status changes [Recovered/Resolved]
